FAERS Safety Report 8399780-2 (Version None)
Quarter: 2012Q2

REPORT INFORMATION
  Report Type: 
  Country: None (occurrence: None)
  Receive Date: 20120531
  Receipt Date: 20120516
  Transmission Date: 20120825
  Serious: No
  Sender: FDA-Public Use
  Company Number: US-ASTRAZENECA-2012SE31778

PATIENT
  Age: 21 Year
  Sex: Female
  Weight: 54.6 kg

DRUGS (13)
  1. SEROQUEL [Suspect]
     Route: 048
  2. CELEXA [Concomitant]
  3. PRISTIQ [Concomitant]
  4. SEROQUEL [Suspect]
     Indication: DEPRESSION
     Route: 048
  5. BUSPAR [Concomitant]
  6. SEROQUEL [Suspect]
     Route: 048
  7. SEROQUEL [Suspect]
     Route: 048
  8. BUSPIRONE HCL [Concomitant]
  9. SEROQUEL [Suspect]
     Route: 048
  10. SEROQUEL [Suspect]
     Route: 048
  11. SEROQUEL [Suspect]
     Indication: ANXIETY
     Route: 048
  12. SEROQUEL [Suspect]
     Route: 048
  13. DEPO SHOT [Concomitant]

REACTIONS (2)
  - MOOD SWINGS [None]
  - FEELING ABNORMAL [None]
